FAERS Safety Report 13997992 (Version 1)
Quarter: 2017Q3

REPORT INFORMATION
  Report Type: Spontaneous
  Country: US (occurrence: US)
  Receive Date: 20170921
  Receipt Date: 20170921
  Transmission Date: 20171128
  Serious: Yes (Hospitalization, Disabling)
  Sender: FDA-Public Use
  Company Number: None

PATIENT
  Age: 41 Year
  Sex: Female
  Weight: 61.65 kg

DRUGS (4)
  1. ALPRAZOLAM. [Concomitant]
     Active Substance: ALPRAZOLAM
  2. LEVAFLAXIN [Suspect]
     Active Substance: LEVOFLOXACIN
     Indication: PNEUMONIA
     Dosage: ?          QUANTITY:10 TABLET(S);?
     Route: 048
     Dates: start: 20170906, end: 20170914
  3. PREDNISONE. [Concomitant]
     Active Substance: PREDNISONE
  4. ONE A DAY MULTI VITAMIN [Concomitant]

REACTIONS (8)
  - Nervous system disorder [None]
  - Loss of personal independence in daily activities [None]
  - Muscular weakness [None]
  - Tendonitis [None]
  - Gait disturbance [None]
  - Weight bearing difficulty [None]
  - Arthralgia [None]
  - Fatigue [None]

NARRATIVE: CASE EVENT DATE: 20170906
